FAERS Safety Report 4989052-8 (Version None)
Quarter: 2006Q2

REPORT INFORMATION
  Report Type: 
  Country: None (occurrence: None)
  Receive Date: 20060425
  Receipt Date: 20060410
  Transmission Date: 20061013
  Serious: Yes (Other)
  Sender: FDA-Public Use
  Company Number: 220002M06FRA

PATIENT
  Age: 16 Year
  Sex: Male

DRUGS (1)
  1. SAIZEN [Suspect]
     Indication: GROWTH HORMONE DEFICIENCY
     Dosage: 1.6 MG, 1 IN 1 DAYS
     Dates: start: 20050701, end: 20060228

REACTIONS (3)
  - ASTHENIA [None]
  - CARPAL TUNNEL SYNDROME [None]
  - PARAESTHESIA [None]
